FAERS Safety Report 25273761 (Version 1)
Quarter: 2025Q2

REPORT INFORMATION
  Report Type: Spontaneous
  Country: FR (occurrence: FR)
  Receive Date: 20250506
  Receipt Date: 20250506
  Transmission Date: 20250716
  Serious: Yes (Other)
  Sender: FRESENIUS KABI
  Company Number: None

PATIENT
  Age: 70 Year
  Sex: Female
  Weight: 56 kg

DRUGS (1)
  1. TYENNE [Suspect]
     Active Substance: TOCILIZUMAB-AAZG
     Indication: Rheumatoid arthritis
     Route: 042
     Dates: start: 20241121, end: 20241121

REACTIONS (1)
  - Anaphylactic reaction [Recovered/Resolved]

NARRATIVE: CASE EVENT DATE: 20241121
